FAERS Safety Report 6000094-6 (Version None)
Quarter: 2008Q4

REPORT INFORMATION
  Report Type: 
  Country: None (occurrence: None)
  Receive Date: 20081215
  Receipt Date: 20081210
  Transmission Date: 20090506
  Serious: Yes (Life-Threatening)
  Sender: FDA-Public Use
  Company Number: B0550008A

PATIENT
  Age: 44 Year
  Sex: Female

DRUGS (1)
  1. AMOXICILLIN TRIHYDRATE [Suspect]
     Indication: URINARY TRACT INFECTION
     Dosage: 2G PER DAY
     Route: 048
     Dates: start: 20081020, end: 20081021

REACTIONS (2)
  - LIMB DISCOMFORT [None]
  - RASH ERYTHEMATOUS [None]
